FAERS Safety Report 9230779 (Version 1)
Quarter: 2013Q2

REPORT INFORMATION
  Report Type: Spontaneous
  Country: GB (occurrence: None)
  Receive Date: 20130411
  Receipt Date: 20130411
  Transmission Date: 20140414
  Serious: Yes (Hospitalization)
  Sender: FDA-Public Use
  Company Number: AUR-APL-2013-02889

PATIENT
  Age: 86 Year
  Sex: Female
  Weight: 56.3 kg

DRUGS (7)
  1. NAPROXEN (NAPROXEN) [Suspect]
     Indication: OSTEOARTHRITIS
     Route: 048
     Dates: start: 20110622, end: 20130314
  2. AMLODIPINE (AMLODIPINE) [Concomitant]
  3. BENDROFLUMETHIAZIDE (BENDROFLUMETHIAZIDE) [Concomitant]
  4. CALCICHEW D3 (LEKOVIT CA) [Concomitant]
  5. CITALOPRAM (CITALOPRAM) [Concomitant]
  6. NIFEDIPINE (NIFEDIPINE) [Concomitant]
  7. PARACETAMOL (PARACETAMOL) [Concomitant]

REACTIONS (2)
  - Gastric haemorrhage [None]
  - Gastric cancer [None]
